FAERS Safety Report 18313516 (Version 6)
Quarter: 2021Q4

REPORT INFORMATION
  Report Type: Other
  Country: RO (occurrence: RO)
  Receive Date: 20200925
  Receipt Date: 20211013
  Transmission Date: 20220303
  Serious: Yes (Other)
  Sender: FDA-Public Use
  Company Number: RO-ROCHE-2658044

PATIENT
  Sex: Female
  Weight: 100 kg

DRUGS (5)
  1. HERCEPTIN [Suspect]
     Active Substance: TRASTUZUMAB
     Indication: Breast cancer
     Route: 042
  2. TAMOXIFEN [Suspect]
     Active Substance: TAMOXIFEN
     Indication: Breast cancer
     Route: 065
  3. HERCEPTIN [Suspect]
     Active Substance: TRASTUZUMAB
     Indication: Product used for unknown indication
     Route: 058
  4. ALECENSA [Suspect]
     Active Substance: ALECTINIB HYDROCHLORIDE
     Indication: Lung neoplasm malignant
     Dosage: FOR 28 DAYS
     Route: 048
     Dates: start: 202101
  5. ALECENSA [Suspect]
     Active Substance: ALECTINIB HYDROCHLORIDE
     Dosage: 2-3 CAPSULES
     Route: 048

REACTIONS (23)
  - Metastases to central nervous system [Recovered/Resolved]
  - Paralysis [Unknown]
  - Optic nerve disorder [Unknown]
  - Blindness [Unknown]
  - Dysphagia [Unknown]
  - Confusional state [Unknown]
  - Injection site swelling [Recovered/Resolved]
  - Vascular pain [Recovered/Resolved]
  - Malaise [Unknown]
  - Breast cancer recurrent [Unknown]
  - Memory impairment [Unknown]
  - Tremor [Unknown]
  - Back pain [Unknown]
  - Bone pain [Unknown]
  - Recurrent cancer [Recovering/Resolving]
  - Neoplasm [Recovering/Resolving]
  - Off label use [Unknown]
  - Angina pectoris [Unknown]
  - Brain neoplasm [Unknown]
  - Drug intolerance [Unknown]
  - Delirium [Unknown]
  - Headache [Unknown]
  - Weight increased [Unknown]
